FAERS Safety Report 10190683 (Version 4)
Quarter: 2015Q1

REPORT INFORMATION
  Report Type: Report from Study
  Country: US (occurrence: US)
  Receive Date: 20140523
  Receipt Date: 20150228
  Transmission Date: 20150720
  Serious: Yes (Hospitalization)
  Sender: FDA-Public Use
  Company Number: US-BIOGENIDEC-2014BI047484

PATIENT
  Age: 59 Year
  Sex: Male

DRUGS (3)
  1. AVONEX [Suspect]
     Active Substance: INTERFERON BETA-1A
     Indication: MULTIPLE SCLEROSIS
     Route: 030
     Dates: start: 20011205
  2. AVONEX [Suspect]
     Active Substance: INTERFERON BETA-1A
     Indication: MULTIPLE SCLEROSIS
     Route: 030
     Dates: start: 201311, end: 20150101
  3. AVONEX [Suspect]
     Active Substance: INTERFERON BETA-1A
     Indication: MULTIPLE SCLEROSIS
     Route: 030
     Dates: start: 201109, end: 201311

REACTIONS (5)
  - Gait disturbance [Recovered/Resolved]
  - Coronary artery bypass [Recovered/Resolved]
  - Myocardial infarction [Recovered/Resolved]
  - Fall [Recovered/Resolved]
  - Limb injury [Unknown]

NARRATIVE: CASE EVENT DATE: 2014
